FAERS Safety Report 25239413 (Version 1)
Quarter: 2025Q2

REPORT INFORMATION
  Report Type: Spontaneous
  Country: US (occurrence: US)
  Receive Date: 20250425
  Receipt Date: 20250425
  Transmission Date: 20250717
  Serious: Yes (Hospitalization, Other)
  Sender: JOHNSON AND JOHNSON
  Company Number: US-JNJFOC-20250423544

PATIENT
  Age: 83 Year
  Sex: Male

DRUGS (1)
  1. AKEEGA [Suspect]
     Active Substance: ABIRATERONE ACETATE\NIRAPARIB TOSYLATE MONOHYDRATE
     Indication: Prostate cancer
     Route: 048
     Dates: start: 202501

REACTIONS (2)
  - Prostate cancer metastatic [Unknown]
  - Cardiac failure [Unknown]
